FAERS Safety Report 9486864 (Version 1)
Quarter: 2013Q3

REPORT INFORMATION
  Report Type: Spontaneous
  Country: GB (occurrence: GB)
  Receive Date: 20130829
  Receipt Date: 20130829
  Transmission Date: 20140515
  Serious: Yes (Other)
  Sender: FDA-Public Use
  Company Number: GB-ROCHE-1267832

PATIENT
  Sex: Male

DRUGS (1)
  1. NAPROSYN [Suspect]
     Indication: MYALGIA
     Route: 065

REACTIONS (1)
  - Pulmonary embolism [Unknown]
